FAERS Safety Report 17770061 (Version 1)
Quarter: 2020Q2

REPORT INFORMATION
  Report Type: Report from Study
  Country: DE (occurrence: DE)
  Receive Date: 20200512
  Receipt Date: 20200512
  Transmission Date: 20200714
  Serious: No
  Sender: FDA-Public Use
  Company Number: DE-ROCHE-2585743

PATIENT
  Age: 71 Year
  Sex: Male
  Weight: 91 kg

DRUGS (13)
  1. CARBAMAZEPINE. [Concomitant]
     Active Substance: CARBAMAZEPINE
     Route: 048
     Dates: start: 2010
  2. OCRELIZUMAB. [Suspect]
     Active Substance: OCRELIZUMAB
     Indication: MULTIPLE SCLEROSIS
     Route: 042
     Dates: start: 20190122
  3. ARIXTRA [Concomitant]
     Active Substance: FONDAPARINUX SODIUM
     Route: 048
     Dates: start: 2005
  4. CARBAMAZEPINE. [Concomitant]
     Active Substance: CARBAMAZEPINE
     Route: 048
     Dates: start: 201312
  5. VITAMIN B12 [Concomitant]
     Active Substance: CYANOCOBALAMIN
     Route: 058
  6. RAMILICH [Concomitant]
     Active Substance: RAMIPRIL
     Route: 048
  7. ACETYLSALICYLSAEURE [Concomitant]
     Active Substance: ASPIRIN
     Route: 048
     Dates: start: 2005, end: 201807
  8. REKAWAN [Concomitant]
     Active Substance: POTASSIUM CHLORIDE
     Route: 048
     Dates: start: 201508
  9. ALLOPURINOL. [Concomitant]
     Active Substance: ALLOPURINOL
     Route: 048
     Dates: start: 200906
  10. OCRELIZUMAB. [Suspect]
     Active Substance: OCRELIZUMAB
     Route: 042
     Dates: start: 20180709, end: 20180723
  11. PANTOPRAZOLE [Concomitant]
     Active Substance: PANTOPRAZOLE
     Route: 048
  12. MARCUMAR [Concomitant]
     Active Substance: PHENPROCOUMON
     Route: 048
     Dates: start: 2015
  13. MAGNESIUM VERLA [MAGNESIUM] [Concomitant]
     Route: 048

REACTIONS (1)
  - Cholelithiasis [Not Recovered/Not Resolved]

NARRATIVE: CASE EVENT DATE: 201912
